FAERS Safety Report 6621114-1 (Version None)
Quarter: 2010Q1

REPORT INFORMATION
  Report Type: 
  Country: None (occurrence: None)
  Receive Date: 20100309
  Receipt Date: 20100303
  Transmission Date: 20100710
  Serious: Yes (Hospitalization)
  Sender: FDA-Public Use
  Company Number: US-BAYER-201015599NA

PATIENT
  Sex: Male

DRUGS (1)
  1. AVELOX [Suspect]
     Indication: DRUG USE FOR UNKNOWN INDICATION
     Dosage: PATIENT DECIDED TO TAKE TWO AVELOX TABLETS PER DAY INSTEAD OF ONE AVELOX TABLET
     Route: 048

REACTIONS (1)
  - TENDONITIS [None]
